FAERS Safety Report 6147746-5 (Version None)
Quarter: 2009Q2

REPORT INFORMATION
  Report Type: 
  Country: None (occurrence: None)
  Receive Date: 20090408
  Receipt Date: 20090331
  Transmission Date: 20091009
  Serious: Yes (Hospitalization)
  Sender: FDA-Public Use
  Company Number: US-BIOGENIDEC-2008BI015836

PATIENT
  Age: 52 Year
  Sex: Female
  Weight: 76 kg

DRUGS (2)
  1. TYSABRI [Suspect]
     Indication: MULTIPLE SCLEROSIS
     Route: 042
     Dates: start: 20050113, end: 20050113
  2. TYSABRI [Suspect]
     Route: 042
     Dates: start: 20080731

REACTIONS (8)
  - BURNING SENSATION [None]
  - CARPAL TUNNEL SYNDROME [None]
  - DYSURIA [None]
  - HYPOAESTHESIA [None]
  - NERVE COMPRESSION [None]
  - PAIN [None]
  - ROAD TRAFFIC ACCIDENT [None]
  - ROTATOR CUFF SYNDROME [None]
